FAERS Safety Report 6870990-6 (Version None)
Quarter: 2010Q3

REPORT INFORMATION
  Report Type: 
  Country: None (occurrence: None)
  Receive Date: 20100723
  Receipt Date: 20100714
  Transmission Date: 20110219
  Serious: Yes (Hospitalization)
  Sender: FDA-Public Use
  Company Number: NL-CELGENEUS-114-20785-09081343

PATIENT
  Sex: Female
  Weight: 89 kg

DRUGS (21)
  1. THALIDOMIDE [Suspect]
     Indication: MULTIPLE MYELOMA
     Route: 048
     Dates: start: 20090601
  2. THALIDOMIDE [Suspect]
     Route: 048
     Dates: start: 20090809, end: 20090818
  3. MELPHALAN [Suspect]
     Indication: MULTIPLE MYELOMA
     Route: 048
     Dates: start: 20090809, end: 20090812
  4. PREDNISONE [Suspect]
     Indication: MULTIPLE MYELOMA
     Route: 048
     Dates: start: 20090809, end: 20090812
  5. METOPROLOL SUCCINATE [Concomitant]
     Indication: HYPERTENSION
     Route: 048
     Dates: start: 20090512
  6. CANDESARTAN [Concomitant]
     Indication: HYPERTENSION
     Route: 048
     Dates: start: 20090512
  7. COTRIM [Concomitant]
     Indication: PROPHYLAXIS
     Dosage: 1/2 TABLET
     Route: 048
     Dates: start: 20090521
  8. FLUCONAZOLE [Concomitant]
     Indication: PROPHYLAXIS
     Route: 048
     Dates: start: 20090526
  9. ORAMORPH SR [Concomitant]
     Indication: PAIN
     Route: 048
     Dates: start: 20090706
  10. FENTANYL [Concomitant]
     Indication: PAIN
     Route: 062
     Dates: start: 20090706
  11. PARACETAMOL [Concomitant]
     Indication: PAIN
     Route: 054
     Dates: start: 20090703
  12. INSULIN ASPART [Concomitant]
     Indication: DIABETES MELLITUS
     Route: 058
     Dates: start: 20090706
  13. METFORMIN [Concomitant]
     Indication: DIABETES MELLITUS
     Route: 048
     Dates: start: 20090512
  14. ALPHACALCIDOL [Concomitant]
     Indication: PRODUCT USED FOR UNKNOWN INDICATION
     Route: 048
     Dates: start: 20090706
  15. CALCIUM CARBONATE [Concomitant]
     Indication: PRODUCT USED FOR UNKNOWN INDICATION
     Route: 048
     Dates: start: 20090706
  16. ACENOCUMAROL [Concomitant]
     Indication: PRODUCT USED FOR UNKNOWN INDICATION
     Route: 048
     Dates: start: 20090512
  17. FUROSEMIDE [Concomitant]
     Indication: PRODUCT USED FOR UNKNOWN INDICATION
     Route: 048
     Dates: start: 20090728
  18. CLEMASTINE FUMARATE [Concomitant]
     Indication: PRODUCT USED FOR UNKNOWN INDICATION
     Route: 048
     Dates: start: 20090706
  19. MOVICOLON [Concomitant]
     Indication: CONSTIPATION
     Dosage: 2 SACHET/DAY
     Route: 048
     Dates: start: 20090818
  20. MOVICOLON [Concomitant]
     Route: 048
     Dates: start: 20090706
  21. APD [Concomitant]
     Indication: PRODUCT USED FOR UNKNOWN INDICATION
     Route: 051
     Dates: start: 20090512

REACTIONS (3)
  - CONSTIPATION [None]
  - DEHYDRATION [None]
  - DELIRIUM [None]
